FAERS Safety Report 24183784 (Version 1)
Quarter: 2024Q3

REPORT INFORMATION
  Report Type: Spontaneous
  Country: DE (occurrence: DE)
  Receive Date: 20240807
  Receipt Date: 20240807
  Transmission Date: 20241016
  Serious: Yes (Other)
  Sender: JOHNSON AND JOHNSON
  Company Number: DE-JNJFOC-20240772551

PATIENT
  Sex: Male

DRUGS (1)
  1. TALQUETAMAB [Suspect]
     Active Substance: TALQUETAMAB
     Indication: Plasma cell myeloma
     Route: 065

REACTIONS (15)
  - Oxygen saturation decreased [Unknown]
  - Interleukin level increased [Unknown]
  - Myalgia [Unknown]
  - Dyspnoea [Unknown]
  - Chills [Unknown]
  - Ageusia [Unknown]
  - Dry skin [Unknown]
  - Back pain [Unknown]
  - Dizziness [Unknown]
  - Body temperature increased [Unknown]
  - Hypotension [Unknown]
  - Dry mouth [Unknown]
  - Nasal discomfort [Unknown]
  - Dyspepsia [Unknown]
  - Off label use [Unknown]
